FAERS Safety Report 17915494 (Version 1)
Quarter: 2020Q2

REPORT INFORMATION
  Report Type: Spontaneous
  Country: CN (occurrence: CN)
  Receive Date: 20200619
  Receipt Date: 20200619
  Transmission Date: 20200714
  Serious: Yes (Hospitalization)
  Sender: FDA-Public Use
  Company Number: CN-BAXTER-2020BAX012608

PATIENT
  Age: 11 Year
  Sex: Female
  Weight: 39 kg

DRUGS (6)
  1. 0.9% SODIUM CHLORIDE INJECTION [Suspect]
     Active Substance: SODIUM CHLORIDE
     Dosage: VAC REGIMEN, DAY 1,NS + VINDESINE SULFATE 2 MG
     Route: 041
     Dates: start: 20200510, end: 20200510
  2. 0.9% SODIUM CHLORIDE INJECTION [Suspect]
     Active Substance: SODIUM CHLORIDE
     Indication: MEDICATION DILUTION
     Dosage: VAC REGIMEN, DAY 1-2, NS 500+ ENDOXAN 0.68 G
     Route: 041
     Dates: start: 20200510, end: 20200511
  3. ENDOXAN [Suspect]
     Active Substance: CYCLOPHOSPHAMIDE
     Indication: EWING^S SARCOMA
     Dosage: VAC REGIMEN, DAY 1-2, ENDOXAN + NS 500 ML
     Route: 041
     Dates: start: 20200510, end: 20200511
  4. DOXORUBICIN HYDROCHLORIDE LIPOSOME [Suspect]
     Active Substance: DOXORUBICIN HYDROCHLORIDE
     Indication: EWING^S SARCOMA
     Dosage: VAC REGIMEN, DAY 1-3, DOXORUBICIN HYDROCHLORIDE + GS 500 ML
     Route: 041
     Dates: start: 20200510, end: 20200512
  5. VINDESINE SULFATE [Suspect]
     Active Substance: VINDESINE SULFATE
     Indication: EWING^S SARCOMA
     Dosage: VAC REGIMEN, DAY 1, VINDESINE SULFATE + NS 500 ML
     Route: 041
     Dates: start: 20200510, end: 20200510
  6. 5% GLUCOSE  INJECTION [Suspect]
     Active Substance: DEXTROSE
     Indication: MEDICATION DILUTION
     Dosage: VAC REGIMEN, DAY 1-3, GS + DOXORUBICIN HYDROCHLORIDE LIPOSOME 20 MG
     Route: 041
     Dates: start: 20200510, end: 20200512

REACTIONS (1)
  - Bone marrow failure [Recovering/Resolving]

NARRATIVE: CASE EVENT DATE: 20200521
